FAERS Safety Report 7942894-9 (Version None)
Quarter: 2011Q4

REPORT INFORMATION
  Report Type: 
  Country: None (occurrence: None)
  Receive Date: 20111128
  Receipt Date: 20111117
  Transmission Date: 20120403
  Serious: Yes (Other)
  Sender: FDA-Public Use
  Company Number: CH-MERCK-1111USA02795

PATIENT
  Age: 84 Year
  Sex: Male

DRUGS (2)
  1. COZAAR [Concomitant]
     Route: 048
  2. COSOPT [Suspect]
     Route: 065
     Dates: start: 20110601

REACTIONS (2)
  - SPINAL DISORDER [None]
  - RASH [None]
